FAERS Safety Report 15172615 (Version 1)
Quarter: 2018Q3

REPORT INFORMATION
  Report Type: Spontaneous
  Country: US (occurrence: US)
  Receive Date: 20180720
  Receipt Date: 20180720
  Transmission Date: 20181010
  Serious: Yes (Other)
  Sender: FDA-Public Use
  Company Number: US-ELI_LILLY_AND_COMPANY-US201807005217

PATIENT
  Age: 75 Year
  Sex: Female

DRUGS (3)
  1. HUMALOG [Suspect]
     Active Substance: INSULIN LISPRO
     Dosage: 18 U, BID
     Route: 065
  2. HUMALOG [Suspect]
     Active Substance: INSULIN LISPRO
     Indication: TYPE 2 DIABETES MELLITUS
     Dosage: 18 U, BID
     Route: 065
     Dates: start: 2013
  3. HUMALOG [Suspect]
     Active Substance: INSULIN LISPRO
     Dosage: 18 U, BID
     Route: 065

REACTIONS (11)
  - Visual impairment [Unknown]
  - Hypoacusis [Unknown]
  - Drug dose omission [Recovering/Resolving]
  - Liver disorder [Unknown]
  - Fall [Unknown]
  - Blood glucose increased [Recovered/Resolved]
  - Tinnitus [Unknown]
  - Feeling hot [Unknown]
  - Headache [Unknown]
  - Eye disorder [Unknown]
  - Mobility decreased [Unknown]

NARRATIVE: CASE EVENT DATE: 20180709
